FAERS Safety Report 4705061-8 (Version None)
Quarter: 2005Q3

REPORT INFORMATION
  Report Type: 
  Country: None (occurrence: None)
  Receive Date: 20050701
  Receipt Date: 20050517
  Transmission Date: 20060218
  Serious: Yes (Hospitalization)
  Sender: FDA-Public Use
  Company Number: 2005AP02972

PATIENT
  Age: 24716 Day
  Sex: Female

DRUGS (3)
  1. IRESSA [Suspect]
     Indication: LUNG ADENOCARCINOMA RECURRENT
     Route: 048
     Dates: start: 20050409, end: 20050419
  2. THYRADIN [Concomitant]
     Indication: HYPOTHYROIDISM
     Route: 048
  3. UFT [Concomitant]
     Dates: start: 20041112, end: 20050325

REACTIONS (3)
  - CONDITION AGGRAVATED [None]
  - ERYTHEMA [None]
  - ROSACEA [None]
